FAERS Safety Report 9100101 (Version 4)
Quarter: 2013Q3

REPORT INFORMATION
  Report Type: Spontaneous
  Country: FR (occurrence: FR)
  Receive Date: 20130215
  Receipt Date: 20130820
  Transmission Date: 20140515
  Serious: Yes (Hospitalization)
  Sender: FDA-Public Use
  Company Number: FR-ABBOTT-13P-056-1049691-00

PATIENT
  Age: 40 Year
  Sex: Female

DRUGS (6)
  1. HUMIRA [Suspect]
     Indication: CROHN^S DISEASE
     Route: 048
     Dates: start: 201111, end: 201302
  2. HUMIRA [Suspect]
     Indication: SPONDYLITIS
  3. APROVEL [Suspect]
     Indication: PRODUCT USED FOR UNKNOWN INDICATION
     Route: 048
     Dates: start: 201203, end: 201302
  4. IMUREL [Suspect]
     Indication: PRODUCT USED FOR UNKNOWN INDICATION
     Route: 048
     Dates: start: 2011, end: 20130219
  5. METFORMINE [Suspect]
     Indication: DIABETES MELLITUS
     Dates: start: 20130104, end: 20130107
  6. DELURSAN [Concomitant]
     Indication: PRODUCT USED FOR UNKNOWN INDICATION
     Dosage: 250 MG / DAY

REACTIONS (8)
  - Jaundice cholestatic [Recovered/Resolved]
  - Hepatocellular injury [Unknown]
  - Transaminases increased [Recovered/Resolved]
  - Asthenia [Unknown]
  - Abdominal pain upper [Unknown]
  - Wound complication [Unknown]
  - Prothrombin level decreased [Unknown]
  - Pruritus [Unknown]
